FAERS Safety Report 5518506-0 (Version None)
Quarter: 2007Q4

REPORT INFORMATION
  Report Type: 
  Country: None (occurrence: None)
  Receive Date: 20071115
  Receipt Date: 20071107
  Transmission Date: 20080405
  Serious: Yes (Hospitalization)
  Sender: FDA-Public Use
  Company Number: US-BRACCO-BDI-010507

PATIENT
  Sex: Female

DRUGS (1)
  1. MULTIHANCE [Suspect]
     Route: 042
     Dates: start: 20071101, end: 20071101

REACTIONS (4)
  - ASTHENIA [None]
  - DIZZINESS [None]
  - DYSPHAGIA [None]
  - PULSE ABSENT [None]
